FAERS Safety Report 24936295 (Version 2)
Quarter: 2025Q2

REPORT INFORMATION
  Report Type: Spontaneous
  Country: US (occurrence: US)
  Receive Date: 20250206
  Receipt Date: 20250404
  Transmission Date: 20250716
  Serious: No
  Sender: GLAXOSMITHKLINE
  Company Number: US-GSKCCFUS-Case-02206422_AE-121138

PATIENT
  Age: 78 Year
  Sex: Male
  Weight: 90.249 kg

DRUGS (1)
  1. NUCALA [Suspect]
     Active Substance: MEPOLIZUMAB
     Indication: Product used for unknown indication
     Dosage: 100 MG, Q4W
     Route: 058
     Dates: start: 20241228, end: 20250128

REACTIONS (3)
  - Joint swelling [Unknown]
  - Back pain [Unknown]
  - Pain in extremity [Unknown]

NARRATIVE: CASE EVENT DATE: 20250101
